FAERS Safety Report 5474171-2 (Version None)
Quarter: 2007Q3

REPORT INFORMATION
  Report Type: 
  Country: None (occurrence: None)
  Receive Date: 20070928
  Receipt Date: 20070912
  Transmission Date: 20080115
  Serious: No
  Sender: FDA-Public Use
  Company Number: 8026537

PATIENT
  Age: 43 Year
  Sex: Male

DRUGS (1)
  1. KEPPRA [Suspect]
     Dosage: 250 MG 4/D PO
     Route: 048
     Dates: start: 20070823, end: 20070801

REACTIONS (2)
  - DRUG DISPENSING ERROR [None]
  - WRONG DRUG ADMINISTERED [None]
